FAERS Safety Report 11279531 (Version 1)
Quarter: 2015Q3

REPORT INFORMATION
  Report Type: Report from Study
  Country: US (occurrence: None)
  Receive Date: 20150715
  Receipt Date: 20150715
  Transmission Date: 20151125
  Serious: Yes (Life-Threatening, Hospitalization, Disabling, Other)
  Sender: FDA-Public Use
  Company Number: 2015-11673

PATIENT
  Age: 61 Year
  Sex: Male
  Weight: 88.4 kg

DRUGS (15)
  1. CLONAZEPAM. [Concomitant]
     Active Substance: CLONAZEPAM
  2. ASPIRIN (ACETYLSALICYLIC ACID) [Concomitant]
     Active Substance: ASPIRIN
  3. LISINOPRIL. [Concomitant]
     Active Substance: LISINOPRIL
  4. FUROSEMIDE. [Concomitant]
     Active Substance: FUROSEMIDE
  5. METFORMIN [Concomitant]
     Active Substance: METFORMIN HYDROCHLORIDE
  6. LOVASTATIN. [Concomitant]
     Active Substance: LOVASTATIN
  7. POTASSIUM [Concomitant]
     Active Substance: POTASSIUM
  8. EYLEA [Suspect]
     Active Substance: AFLIBERCEPT
     Indication: DIABETIC RETINAL OEDEMA
     Dosage: OD, PER PROTOCOL,
     Route: 031
     Dates: start: 20140730
  9. VITAMIN C [Concomitant]
     Active Substance: ASCORBIC ACID
  10. EYLEA [Suspect]
     Active Substance: AFLIBERCEPT
     Dosage: OD, PER PROTOCOL,
     Route: 031
     Dates: start: 20140730
  11. LASER (LASER) [Suspect]
     Active Substance: DEVICE
     Dosage: OD, PER PROTOCOL,
     Route: 031
     Dates: start: 20140730
  12. METOPROLOL [Concomitant]
     Active Substance: METOPROLOL
  13. CLONIDINE. [Concomitant]
     Active Substance: CLONIDINE
  14. LASER (LASER) [Suspect]
     Active Substance: DEVICE
     Indication: DIABETIC RETINAL OEDEMA
     Dosage: OD, PER PROTOCOL,
     Route: 031
     Dates: start: 20140730
  15. ATORVASTATIN [Concomitant]
     Active Substance: ATORVASTATIN

REACTIONS (3)
  - Cerebrovascular accident [None]
  - Carotid artery disease [None]
  - Visual field defect [None]

NARRATIVE: CASE EVENT DATE: 20150530
